FAERS Safety Report 7033226-1 (Version None)
Quarter: 2010Q4

REPORT INFORMATION
  Report Type: 
  Country: None (occurrence: None)
  Receive Date: 20101005
  Receipt Date: 20100923
  Transmission Date: 20110411
  Serious: Yes (Hospitalization, Other)
  Sender: FDA-Public Use
  Company Number: 1000016540

PATIENT
  Sex: Male

DRUGS (1)
  1. ESCITALOPRAM [Suspect]
     Dosage: 20 MG (20 MG,1 IN 1 D)

REACTIONS (2)
  - REBOUND EFFECT [None]
  - SUICIDAL IDEATION [None]
